FAERS Safety Report 7834032-8 (Version None)
Quarter: 2011Q4

REPORT INFORMATION
  Report Type: 
  Country: None (occurrence: None)
  Receive Date: 20111024
  Receipt Date: 20111024
  Transmission Date: 20120403
  Serious: Yes (Hospitalization)
  Sender: FDA-Public Use
  Company Number: None

PATIENT
  Age: 56 Year
  Sex: Male
  Weight: 92.2 kg

DRUGS (4)
  1. ROMIDEPSIN [Suspect]
     Indication: B-CELL SMALL LYMPHOCYTIC LYMPHOMA
     Dosage: 8 MG/M2 = 17.6 MG
     Route: 041
  2. ROMIDEPSIN [Suspect]
     Indication: CHRONIC LYMPHOCYTIC LEUKAEMIA
     Dosage: 8 MG/M2 = 17.6 MG
     Route: 041
  3. BORTEZOMIB [Concomitant]
     Indication: B-CELL SMALL LYMPHOCYTIC LYMPHOMA
     Dosage: 1.6 MG/M2=3.5 MG
     Route: 040
  4. BORTEZOMIB [Concomitant]
     Indication: CHRONIC LYMPHOCYTIC LEUKAEMIA
     Dosage: 1.6 MG/M2=3.5 MG
     Route: 040

REACTIONS (16)
  - NAUSEA [None]
  - VOMITING [None]
  - HYPERHIDROSIS [None]
  - PHOTOPHOBIA [None]
  - HYPOTENSION [None]
  - RETCHING [None]
  - FATIGUE [None]
  - RASH [None]
  - CONJUNCTIVITIS [None]
  - DRUG RESISTANCE [None]
  - TREMOR [None]
  - CYTOKINE RELEASE SYNDROME [None]
  - TOXICITY TO VARIOUS AGENTS [None]
  - CHILLS [None]
  - PERIORBITAL OEDEMA [None]
  - DIARRHOEA [None]
